FAERS Safety Report 5109890-0 (Version None)
Quarter: 2006Q3

REPORT INFORMATION
  Report Type: 
  Country: None (occurrence: None)
  Receive Date: 20060919
  Receipt Date: 20060919
  Transmission Date: 20061208
  Serious: Yes (Hospitalization)
  Sender: FDA-Public Use
  Company Number: None

PATIENT
  Age: 57 Year
  Sex: Male
  Weight: 119 kg

DRUGS (11)
  1. INDOCIN [Suspect]
     Indication: GOUT
     Dosage: 50 MG PO TID PRN
     Route: 048
  2. WARFARIN SODIUM [Suspect]
     Indication: ANTICOAGULANT THERAPY
     Dosage: 9 MG PO DAILY    CHRONIC
     Route: 048
  3. LASIX [Concomitant]
  4. ALLOPURINOL [Concomitant]
  5. LABETALOL HCL [Concomitant]
  6. INDOCIN [Concomitant]
  7. NORVASC [Concomitant]
  8. MINOXIDIL [Concomitant]
  9. POTASSIUM CHLORIDE [Concomitant]
  10. PEPCID [Concomitant]
  11. CALCITRIOL [Concomitant]

REACTIONS (9)
  - ASTHENIA [None]
  - DYSPNOEA [None]
  - FATIGUE [None]
  - GASTRIC ULCER [None]
  - GASTRITIS [None]
  - GASTROINTESTINAL HAEMORRHAGE [None]
  - HAEMATOCRIT DECREASED [None]
  - HAEMOGLOBIN DECREASED [None]
  - PEPTIC ULCER [None]
